FAERS Safety Report 24661592 (Version 1)
Quarter: 2024Q4

REPORT INFORMATION
  Report Type: Spontaneous
  Country: US (occurrence: US)
  Receive Date: 20241125
  Receipt Date: 20241125
  Transmission Date: 20250115
  Serious: No
  Sender: SANOFI AVENTIS
  Company Number: US-SA-2024SA340708

PATIENT
  Sex: Male
  Weight: 63 kg

DRUGS (6)
  1. DUPIXENT [Suspect]
     Active Substance: DUPILUMAB
     Indication: Nasal polyps
     Dosage: 300 MG, QOW
     Route: 058
  2. NIFEDIPINE [Concomitant]
     Active Substance: NIFEDIPINE
  3. ALBUTEROL SULFATE [Concomitant]
     Active Substance: ALBUTEROL SULFATE
  4. ASMANEX [Concomitant]
     Active Substance: MOMETASONE FUROATE
  5. FLUTICASONE PROPIONATE [Concomitant]
     Active Substance: FLUTICASONE PROPIONATE
  6. LATANOPROST [Concomitant]
     Active Substance: LATANOPROST

REACTIONS (1)
  - Rash [Unknown]
